FAERS Safety Report 23225365 (Version 2)
Quarter: 2024Q2

REPORT INFORMATION
  Report Type: Report from Study
  Country: US (occurrence: US)
  Receive Date: 20231124
  Receipt Date: 20240512
  Transmission Date: 20240716
  Serious: Yes (Other)
  Sender: FDA-Public Use
  Company Number: US-ALXN-A202312482AA

PATIENT
  Sex: Male

DRUGS (1)
  1. ULTOMIRIS [Suspect]
     Active Substance: RAVULIZUMAB-CWVZ
     Indication: Myasthenia gravis
     Dosage: UNK
     Route: 065

REACTIONS (12)
  - Depressed level of consciousness [Unknown]
  - Fall [Unknown]
  - Peripheral swelling [Unknown]
  - Joint swelling [Unknown]
  - Fluid retention [Unknown]
  - General physical health deterioration [Unknown]
  - Somnolence [Unknown]
  - Swelling face [Unknown]
  - Dyspnoea [Unknown]
  - Back pain [Unknown]
  - Dizziness [Unknown]
  - Fatigue [Not Recovered/Not Resolved]

NARRATIVE: CASE EVENT DATE: 20230919
